FAERS Safety Report 5155322-6 (Version None)
Quarter: 2006Q4

REPORT INFORMATION
  Report Type: 
  Country: None (occurrence: None)
  Receive Date: 20061121
  Receipt Date: 20061013
  Transmission Date: 20070319
  Serious: Yes (Hospitalization)
  Sender: FDA-Public Use
  Company Number: 2006UW19919

PATIENT
  Age: 43 Year
  Sex: Female

DRUGS (3)
  1. SEROQUEL [Suspect]
     Indication: BIPOLAR II DISORDER
     Route: 048
  2. NORTRIPTYLINE HCL [Concomitant]
  3. LITHIUM CARBONATE [Concomitant]

REACTIONS (7)
  - AGITATION [None]
  - CRYING [None]
  - DEPRESSION [None]
  - IRRITABILITY [None]
  - SEDATION [None]
  - SOMNOLENCE [None]
  - WEIGHT INCREASED [None]
